FAERS Safety Report 5248743-4 (Version None)
Quarter: 2007Q1

REPORT INFORMATION
  Report Type: 
  Country: None (occurrence: None)
  Receive Date: 20070228
  Receipt Date: 20060224
  Transmission Date: 20070707
  Serious: No
  Sender: FDA-Public Use
  Company Number: US-GLAXOSMITHKLINE-A0586480A

PATIENT
  Sex: Female

DRUGS (4)
  1. VALTREX [Suspect]
     Dosage: 500MG THREE TIMES PER DAY
     Route: 048
     Dates: start: 20051217
  2. AZMACORT [Concomitant]
  3. SYNTHROID [Concomitant]
  4. CALCIUM [Concomitant]

REACTIONS (2)
  - PRURITUS [None]
  - RASH [None]
